FAERS Safety Report 21244495 (Version 1)
Quarter: 2022Q3

REPORT INFORMATION
  Report Type: Spontaneous
  Country: US (occurrence: US)
  Receive Date: 20220823
  Receipt Date: 20220823
  Transmission Date: 20221027
  Serious: Yes (Other)
  Sender: FDA-Public Use
  Company Number: US-ORGANON-O2208USA001687

PATIENT
  Age: 28 Year
  Sex: Female

DRUGS (1)
  1. NEXPLANON [Suspect]
     Active Substance: ETONOGESTREL
     Indication: Contraception
     Dosage: 1 IMPLANT, RIGHT ARM (68 MILLIGRAM)
     Route: 059
     Dates: start: 202008

REACTIONS (2)
  - Device dislocation [Not Recovered/Not Resolved]
  - Menstrual disorder [Not Recovered/Not Resolved]
